FAERS Safety Report 18182471 (Version 1)
Quarter: 2020Q3

REPORT INFORMATION
  Report Type: Spontaneous
  Country: US (occurrence: US)
  Receive Date: 20200821
  Receipt Date: 20200821
  Transmission Date: 20201103
  Serious: Yes (Death)
  Sender: FDA-Public Use
  Company Number: US-ASTRAZENECA-2020SF05443

PATIENT
  Age: 819 Month
  Sex: Male

DRUGS (9)
  1. LASIX [Concomitant]
     Active Substance: FUROSEMIDE
     Route: 048
  2. CRESTOR [Suspect]
     Active Substance: ROSUVASTATIN CALCIUM
     Route: 048
  3. ZYLOPRIM [Concomitant]
     Active Substance: ALLOPURINOL
     Route: 048
  4. BENAZEPRIL/HCTZ 20/12.5 MG [Concomitant]
     Dosage: 2 TABLETS EVERY NIGHT
     Route: 048
  5. FARXIGA [Suspect]
     Active Substance: DAPAGLIFLOZIN PROPANEDIOL
     Indication: TYPE 2 DIABETES MELLITUS
     Route: 048
     Dates: start: 20200702
  6. ASPIRIN. [Concomitant]
     Active Substance: ASPIRIN
     Route: 048
  7. COREG [Concomitant]
     Active Substance: CARVEDILOL
     Route: 048
  8. METFORMIN [Concomitant]
     Active Substance: METFORMIN HYDROCHLORIDE
     Route: 048
  9. FARXIGA [Suspect]
     Active Substance: DAPAGLIFLOZIN PROPANEDIOL
     Indication: CARDIAC FAILURE
     Route: 048
     Dates: start: 20200702

REACTIONS (5)
  - Fall [Fatal]
  - Abdominal pain upper [Unknown]
  - Abdominal discomfort [Unknown]
  - Head injury [Fatal]
  - Dizziness [Unknown]

NARRATIVE: CASE EVENT DATE: 202007
